FAERS Safety Report 4677355-6 (Version None)
Quarter: 2005Q2

REPORT INFORMATION
  Report Type: 
  Country: None (occurrence: None)
  Receive Date: 20050526
  Receipt Date: 20050513
  Transmission Date: 20051028
  Serious: Yes (Hospitalization, Other)
  Sender: FDA-Public Use
  Company Number: HQWYE828520MAY05

PATIENT
  Age: 34 Year
  Sex: Male

DRUGS (17)
  1. EFFEXOR [Suspect]
     Dosage: SEE IMAGE
     Route: 048
     Dates: start: 20040922, end: 20040923
  2. EFFEXOR [Suspect]
     Dosage: SEE IMAGE
     Route: 048
     Dates: start: 20040924, end: 20040924
  3. EFFEXOR [Suspect]
     Dosage: SEE IMAGE
     Route: 048
     Dates: start: 20040928, end: 20041018
  4. EFFEXOR [Suspect]
     Dosage: SEE IMAGE
     Route: 048
     Dates: start: 20041019, end: 20041122
  5. EFFEXOR [Suspect]
     Dosage: SEE IMAGE
     Route: 048
     Dates: start: 20041123, end: 20041124
  6. EFFEXOR [Suspect]
     Dosage: SEE IMAGE
     Route: 048
     Dates: start: 20041125, end: 20041127
  7. EFFEXOR [Suspect]
     Dosage: SEE IMAGE
     Route: 048
     Dates: start: 20041128, end: 20041128
  8. EFFEXOR [Suspect]
     Dosage: SEE IMAGE
     Route: 048
     Dates: start: 20041129, end: 20041202
  9. LITHIUM CARBONATE [Suspect]
     Dosage: SEE IMAGE
     Route: 048
     Dates: start: 20041027, end: 20041030
  10. LITHIUM CARBONATE [Suspect]
     Dosage: SEE IMAGE
     Route: 048
     Dates: start: 20041031, end: 20041103
  11. LITHIUM CARBONATE [Suspect]
     Dosage: SEE IMAGE
     Route: 048
     Dates: start: 20041104, end: 20041111
  12. LITHIUM CARBONATE [Suspect]
     Dosage: SEE IMAGE
     Route: 048
     Dates: start: 20041112, end: 20041118
  13. LITHIUM CARBONATE [Suspect]
     Dosage: SEE IMAGE
     Route: 048
     Dates: start: 20041119, end: 20041120
  14. LITHIUM CARBONATE [Suspect]
     Dosage: SEE IMAGE
     Route: 048
     Dates: start: 20041121, end: 20041122
  15. SEROQUEL [Suspect]
     Dosage: SEE IMAGE
     Route: 048
     Dates: start: 20041108, end: 20041108
  16. SEROQUEL [Suspect]
     Dosage: SEE IMAGE
     Route: 048
     Dates: start: 20041109, end: 20041110
  17. SEROQUEL [Suspect]
     Dosage: SEE IMAGE
     Route: 048
     Dates: start: 20041111, end: 20041115

REACTIONS (2)
  - DRUG INTERACTION [None]
  - DYSKINESIA [None]
